FAERS Safety Report 15812920 (Version 1)
Quarter: 2019Q1

REPORT INFORMATION
  Report Type: Spontaneous
  Country: GB (occurrence: GB)
  Receive Date: 20190111
  Receipt Date: 20190111
  Transmission Date: 20190417
  Serious: Yes (Hospitalization)
  Sender: FDA-Public Use
  Company Number: GB-MYLANLABS-2019M1001451

PATIENT
  Age: 26 Year
  Sex: Female

DRUGS (1)
  1. CLOZARIL [Suspect]
     Active Substance: CLOZAPINE
     Indication: BORDERLINE PERSONALITY DISORDER
     Dosage: UNK

REACTIONS (5)
  - Aphasia [Unknown]
  - Product use in unapproved indication [Recovered/Resolved]
  - Blood test abnormal [Unknown]
  - Paralysis [Recovering/Resolving]
  - Withdrawal syndrome [Unknown]
